FAERS Safety Report 17361405 (Version 1)
Quarter: 2020Q1

REPORT INFORMATION
  Report Type: Spontaneous
  Country: US (occurrence: US)
  Receive Date: 20200203
  Receipt Date: 20200203
  Transmission Date: 20200409
  Serious: No
  Sender: FDA-Public Use
  Company Number: US-PFIZER INC-2020018767

PATIENT
  Age: 59 Year
  Sex: Female
  Weight: 83.18 kg

DRUGS (3)
  1. CHANTIX [Suspect]
     Active Substance: VARENICLINE TARTRATE
     Dosage: 1 MG, UNK
     Route: 048
  2. NITROGLYCERIN. [Concomitant]
     Active Substance: NITROGLYCERIN
     Dosage: 0.4 MG, AS NEEDED (Q5MIN, PRN)
     Route: 060
  3. CHANTIX [Suspect]
     Active Substance: VARENICLINE TARTRATE
     Indication: SMOKING CESSATION THERAPY
     Dosage: 1 DF, 2X/DAY (STARTER PACK 0.5 MG-1 MG)
     Route: 048

REACTIONS (4)
  - Anger [Unknown]
  - Irritability [Unknown]
  - Anxiety [Unknown]
  - Fatigue [Unknown]
